FAERS Safety Report 14667288 (Version 2)
Quarter: 2018Q2

REPORT INFORMATION
  Report Type: Spontaneous
  Country: US (occurrence: US)
  Receive Date: 20180322
  Receipt Date: 20180625
  Transmission Date: 20180711
  Serious: No
  Sender: FDA-Public Use
  Company Number: US-AUROBINDO-AUR-APL-2018-010305

PATIENT
  Sex: Male
  Weight: 92.5 kg

DRUGS (10)
  1. FLUDROCORTISONE [Suspect]
     Active Substance: FLUDROCORTISONE
     Indication: HYPOPITUITARISM
  2. TESTOSTERONE. [Suspect]
     Active Substance: TESTOSTERONE
     Indication: HYPOPITUITARISM
     Dosage: 200 MILLIGRAM, EVERY WEEK
     Route: 042
     Dates: start: 2013
  3. PREDNISONE. [Suspect]
     Active Substance: PREDNISONE
     Indication: ADRENAL INSUFFICIENCY
     Dosage: 5 MILLILITER
     Route: 048
  4. DEXAMETHASONE SODIUM PHOSPHATE INJECTION USP 4MG/ML [Suspect]
     Active Substance: DEXAMETHASONE SODIUM PHOSPHATE
     Indication: ADRENAL INSUFFICIENCY
     Dosage: 1 MILLIGRAM 1-2 TABLETS
     Route: 048
     Dates: start: 20180123
  5. FLUDROCORTISONE [Suspect]
     Active Substance: FLUDROCORTISONE
     Indication: ADRENAL INSUFFICIENCY
     Dosage: 0.1 MILLIGRAM
     Route: 048
     Dates: start: 2013
  6. LIOTHYRONINE [Suspect]
     Active Substance: LIOTHYRONINE
     Indication: THYROID HORMONES DECREASED
     Dosage: 25 MCG, ONCE A DAY
     Route: 048
     Dates: start: 2013
  7. HYDROCORTISONE. [Suspect]
     Active Substance: HYDROCORTISONE
     Indication: ADRENAL INSUFFICIENCY
     Dosage: 10 MILLIGRAM THREE TIMES A DAY
     Route: 048
     Dates: start: 2013
  8. LIOTHYRONINE [Suspect]
     Active Substance: LIOTHYRONINE
     Indication: THYROID HORMONES DECREASED
     Dosage: UNK
     Dates: start: 2013
  9. HYDROCORTISONE. [Suspect]
     Active Substance: HYDROCORTISONE
     Indication: HYPOPITUITARISM
  10. DEXAMETHASONE SODIUM PHOSPHATE INJECTION USP 4MG/ML [Suspect]
     Active Substance: DEXAMETHASONE SODIUM PHOSPHATE
     Indication: HYPOPITUITARISM

REACTIONS (1)
  - Drug ineffective [Unknown]
